FAERS Safety Report 7306761-6 (Version None)
Quarter: 2011Q1

REPORT INFORMATION
  Report Type: 
  Country: None (occurrence: None)
  Receive Date: 20110222
  Receipt Date: 20110210
  Transmission Date: 20110831
  Serious: Yes (Hospitalization)
  Sender: FDA-Public Use
  Company Number: FR-BAYER-2011-013364

PATIENT
  Sex: Female

DRUGS (9)
  1. RENITEC COMP [Concomitant]
     Dosage: 1 DF, QD
     Route: 048
     Dates: end: 20101025
  2. LOVENOX [Concomitant]
     Dosage: 1 DF, QD
     Route: 058
  3. NEXIUM [Concomitant]
     Dosage: 1 DF, QD
     Route: 048
  4. ESIDRIX [Concomitant]
     Dosage: 0.5 DF, QD
     Route: 048
  5. CIFLOX [Suspect]
     Indication: PRODUCT USED FOR UNKNOWN INDICATION
     Dosage: DAILY DOSE 2000 MG
     Route: 048
     Dates: start: 20100920, end: 20101025
  6. CIFLOX [Suspect]
     Dosage: DAILY DOSE 1000 MG
     Route: 048
     Dates: start: 20101025, end: 20101027
  7. AXEPIM [Suspect]
     Dosage: DAILY DOSE 3 G
     Route: 042
     Dates: start: 20101025, end: 20101109
  8. AVLOCARDYL [Concomitant]
     Dosage: 1 DF, QD
     Route: 048
  9. AXEPIM [Suspect]
     Indication: PRODUCT USED FOR UNKNOWN INDICATION
     Dosage: DAILY DOSE 6 G
     Route: 042
     Dates: start: 20101001, end: 20101025

REACTIONS (3)
  - RASH [None]
  - RASH MACULO-PAPULAR [None]
  - DRUG RASH WITH EOSINOPHILIA AND SYSTEMIC SYMPTOMS [None]
